FAERS Safety Report 9648240 (Version 1)
Quarter: 2013Q4

REPORT INFORMATION
  Report Type: Spontaneous
  Country: US (occurrence: None)
  Receive Date: 20131024
  Receipt Date: 20131024
  Transmission Date: 20140711
  Serious: Yes (Other)
  Sender: FDA-Public Use
  Company Number: None

PATIENT
  Age: 80 Year
  Sex: Female
  Weight: 68.49 kg

DRUGS (13)
  1. LATANOPROST [Suspect]
     Indication: GLAUCOMA
     Dosage: 1 DROP IN EACH EYE
     Dates: start: 20130516, end: 20131008
  2. METOPROLOL [Concomitant]
  3. CHLORTHALIDONE [Concomitant]
  4. CELEBREX [Concomitant]
  5. FENOFIBRATE [Concomitant]
  6. BENAZEPRIL [Concomitant]
  7. MULTI-VITAMIN [Concomitant]
  8. GLUCOSAMINE CHONDROITIN [Concomitant]
  9. MAGNESIUM OXIDE [Concomitant]
  10. ASPIRIN [Concomitant]
  11. METAMUCIL [Concomitant]
  12. PREPARATION-H [Concomitant]
  13. POISON IVY/OAK HYLAND^S HOMEOPATHIC [Concomitant]

REACTIONS (3)
  - Pruritus [None]
  - Eyelid disorder [None]
  - Skin discolouration [None]
